FAERS Safety Report 8496421-0 (Version None)
Quarter: 2012Q2

REPORT INFORMATION
  Report Type: 
  Country: None (occurrence: None)
  Receive Date: 20120405
  Receipt Date: 20091216
  Transmission Date: 20120825
  Serious: Yes (Other)
  Sender: FDA-Public Use
  Company Number: PHHY2009US56871

PATIENT
  Age: 80 Year
  Sex: Female

DRUGS (1)
  1. RECLAST [Suspect]
     Indication: OSTEOPOROSIS
     Dosage: 5 MG, UNK, INTRAVENOUS
     Route: 042
     Dates: start: 20091216

REACTIONS (6)
  - BLOOD PRESSURE SYSTOLIC INCREASED [None]
  - ERYTHEMA [None]
  - FLUSHING [None]
  - DIZZINESS [None]
  - FEELING HOT [None]
  - CHEST PAIN [None]
